FAERS Safety Report 10216617 (Version 1)
Quarter: 2014Q2

REPORT INFORMATION
  Report Type: Spontaneous
  Country: US (occurrence: US)
  Receive Date: 20140604
  Receipt Date: 20140604
  Transmission Date: 20141212
  Serious: No
  Sender: FDA-Public Use
  Company Number: US-PFIZER INC-2014152676

PATIENT
  Age: 71 Year
  Sex: Female
  Weight: 63.95 kg

DRUGS (5)
  1. CELEBREX [Suspect]
     Indication: FIBROMYALGIA
     Dosage: 100 MG, 1X/DAY
     Route: 048
     Dates: start: 2014, end: 20140513
  2. CELEBREX [Suspect]
     Indication: ARTHRITIS
  3. LINZESS [Suspect]
     Indication: IRRITABLE BOWEL SYNDROME
     Dosage: 145 MG, 1X/DAY
     Route: 048
     Dates: start: 2014, end: 20140513
  4. CELEXA [Concomitant]
     Indication: ANTIDEPRESSANT THERAPY
     Dosage: 20 MG, 1X/DAY
     Route: 048
  5. VIIBRYD [Concomitant]
     Dosage: UNK

REACTIONS (3)
  - Gastric disorder [Not Recovered/Not Resolved]
  - Malaise [Not Recovered/Not Resolved]
  - Weight decreased [Unknown]
